FAERS Safety Report 26089822 (Version 2)
Quarter: 2025Q4

REPORT INFORMATION
  Report Type: Spontaneous
  Country: US (occurrence: US)
  Receive Date: 20251125
  Receipt Date: 20251126
  Transmission Date: 20260117
  Serious: Yes (Hospitalization, Other)
  Sender: ABBVIE
  Company Number: US-ABBVIE-6554265

PATIENT
  Sex: Female
  Weight: 58.966 kg

DRUGS (9)
  1. HUMIRA [Suspect]
     Active Substance: ADALIMUMAB
     Indication: Crohn^s disease
     Route: 058
     Dates: start: 2020, end: 202404
  2. HUMIRA [Suspect]
     Active Substance: ADALIMUMAB
     Route: 058
     Dates: start: 2015, end: 2018
  3. HUMIRA [Suspect]
     Active Substance: ADALIMUMAB
     Route: 058
     Dates: end: 2020
  4. ATOMOXETINE [Concomitant]
     Active Substance: ATOMOXETINE
     Indication: Attention deficit hyperactivity disorder
  5. LEXAPRO [Concomitant]
     Active Substance: ESCITALOPRAM OXALATE
     Indication: Depression
  6. TRAZODONE [Concomitant]
     Active Substance: TRAZODONE HYDROCHLORIDE
     Indication: Sleep disorder therapy
     Dosage: AT NIGHT
  7. Lergitec [Concomitant]
     Indication: Antioestrogen therapy
     Dosage: FORM STRENGTH 10 MILLIGRAM
  8. OZEMPIC [Concomitant]
     Active Substance: SEMAGLUTIDE
     Indication: Oesophageal variceal ligation
  9. VALIUM [Concomitant]
     Active Substance: DIAZEPAM
     Indication: Product used for unknown indication
     Dosage: AS NECESSARY

REACTIONS (18)
  - Large intestinal obstruction [Unknown]
  - Gastrointestinal wall thickening [Recovering/Resolving]
  - Breast pain [Recovered/Resolved]
  - Colitis [Recovered/Resolved]
  - Breast cancer female [Recovering/Resolving]
  - Drug ineffective [Unknown]
  - Breast oedema [Recovered/Resolved]
  - Gastrointestinal disorder [Recovering/Resolving]
  - Incisional hernia [Recovered/Resolved]
  - Breast cancer female [Recovering/Resolving]
  - Diarrhoea [Recovered/Resolved]
  - Incisional hernia [Recovering/Resolving]
  - Incision site impaired healing [Unknown]
  - Joint noise [Unknown]
  - Large intestinal stenosis [Recovering/Resolving]
  - Suture related complication [Unknown]
  - Mastitis [Recovered/Resolved]
  - Breast discharge [Recovered/Resolved]

NARRATIVE: CASE EVENT DATE: 20150101
